FAERS Safety Report 9127540 (Version 1)
Quarter: 2013Q1

REPORT INFORMATION
  Report Type: Spontaneous
  Country: US (occurrence: US)
  Receive Date: 20130228
  Receipt Date: 20130228
  Transmission Date: 20140127
  Serious: No
  Sender: FDA-Public Use
  Company Number: US-GLAXOSMITHKLINE-A0982705A

PATIENT
  Sex: Female

DRUGS (3)
  1. LAMICTAL [Suspect]
     Indication: BIPOLAR DISORDER
     Dosage: 100MG PER DAY
     Route: 048
     Dates: start: 20120625
  2. TIZANIDINE [Concomitant]
  3. AMBIEN [Concomitant]

REACTIONS (4)
  - Dizziness [Unknown]
  - Dizziness [Unknown]
  - Vision blurred [Unknown]
  - Visual impairment [Unknown]
